FAERS Safety Report 9471634 (Version 2)
Quarter: 2014Q1

REPORT INFORMATION
  Report Type: Spontaneous
  Country: US (occurrence: US)
  Receive Date: 20130822
  Receipt Date: 20140102
  Transmission Date: 20141002
  Serious: No
  Sender: FDA-Public Use
  Company Number: US-009507513-1308USA008817

PATIENT
  Age: 58 Year
  Sex: Male

DRUGS (5)
  1. COSOPT PF [Suspect]
     Indication: GLAUCOMA
     Dosage: ONE DROP IN EACH EYE TWICE DAILY
     Route: 047
     Dates: start: 20130729
  2. XALATAN [Concomitant]
  3. TOPROL XL TABLETS [Concomitant]
  4. DIOVAN [Concomitant]
  5. CRESTOR [Concomitant]

REACTIONS (3)
  - Adverse event [Not Recovered/Not Resolved]
  - Liquid product physical issue [Unknown]
  - Headache [Not Recovered/Not Resolved]
